FAERS Safety Report 9553614 (Version 2)
Quarter: 2013Q2

REPORT INFORMATION
  Report Type: Spontaneous
  Country: FR (occurrence: None)
  Receive Date: 20120914
  Receipt Date: 20120914
  Transmission Date: 20140414
  Serious: Yes (Other)
  Sender: FDA-Public Use
  Company Number: JPI-P-011263

PATIENT
  Age: 26 Year
  Sex: Female

DRUGS (7)
  1. XYREM (500 MILLIGRAM/MILLILITERS, SOLUTION) (SODIUM OXYBATE) [Suspect]
     Indication: NARCOLEPSY
     Dosage: 3 GM (1.5 GM, 2 IN 1 D)
     Route: 048
     Dates: start: 20100507, end: 20100515
  2. MODAFINIL [Concomitant]
  3. DIOSMIN [Concomitant]
  4. PARACETAMOL/OPIUM/CAFFEINE [Concomitant]
  5. NIMESULIDE [Concomitant]
  6. STEDIRIL (ETHINYLESTARDIOL/NORGESTREL) [Concomitant]
  7. MOPRAL (OMEPRAZOLE) [Concomitant]

REACTIONS (11)
  - Sleep apnoea syndrome [None]
  - Aphthous stomatitis [None]
  - Abdominal rigidity [None]
  - Abdominal pain [None]
  - Peripheral coldness [None]
  - Cyanosis [None]
  - Middle insomnia [None]
  - Abdominal pain upper [None]
  - Vertigo [None]
  - Inappropriate schedule of drug administration [None]
  - Abdominal rigidity [None]
